FAERS Safety Report 21998802 (Version 3)
Quarter: 2023Q1

REPORT INFORMATION
  Report Type: Spontaneous
  Country: US (occurrence: US)
  Receive Date: 20230216
  Receipt Date: 20230301
  Transmission Date: 20230417
  Serious: Yes (Hospitalization)
  Sender: FDA-Public Use
  Company Number: US-UNITED THERAPEUTICS-UNT-2023-003910

PATIENT
  Age: 60 Year
  Sex: Female

DRUGS (5)
  1. REMODULIN [Suspect]
     Active Substance: TREPROSTINIL
     Indication: Pulmonary arterial hypertension
     Dosage: 0.00692 ?G/KG, CONTINUING
     Route: 058
     Dates: end: 20230130
  2. REMODULIN [Suspect]
     Active Substance: TREPROSTINIL
     Dosage: UNK (AT A PUMP RATE OF 17 MCL/HR), CONTINUING
     Route: 058
     Dates: start: 20230217, end: 202302
  3. REMODULIN [Suspect]
     Active Substance: TREPROSTINIL
     Dosage: UNK, CONTINUING
     Route: 058
     Dates: start: 202205, end: 20230219
  4. TYLENOL [Suspect]
     Active Substance: ACETAMINOPHEN
     Indication: Product used for unknown indication
     Dosage: UNK
     Route: 065
  5. CODEINE [Suspect]
     Active Substance: CODEINE
     Indication: Product used for unknown indication
     Dosage: UNK
     Route: 065

REACTIONS (16)
  - Headache [Recovering/Resolving]
  - Dyspnoea exertional [Unknown]
  - Fatigue [Unknown]
  - Device adhesion issue [Unknown]
  - Device difficult to use [Unknown]
  - Frustration tolerance decreased [Unknown]
  - Illness [Unknown]
  - Cough [Unknown]
  - Muscle spasms [Unknown]
  - Disturbance in attention [Unknown]
  - Wheezing [Not Recovered/Not Resolved]
  - Therapy non-responder [Unknown]
  - Respiratory tract congestion [Unknown]
  - Fall [Recovered/Resolved with Sequelae]
  - Contusion [Unknown]
  - Product administration interrupted [Unknown]

NARRATIVE: CASE EVENT DATE: 20230101
